FAERS Safety Report 7225628-5 (Version None)
Quarter: 2011Q1

REPORT INFORMATION
  Report Type: 
  Country: None (occurrence: None)
  Receive Date: 20110110
  Receipt Date: 20110110
  Transmission Date: 20110831
  Serious: Yes (Life-Threatening, Hospitalization, Disabling)
  Sender: FDA-Public Use
  Company Number: None

PATIENT
  Sex: Male
  Weight: 120.2032 kg

DRUGS (1)
  1. PRADAXA [Suspect]
     Indication: THROMBOSIS PROPHYLAXIS
     Dosage: 150 MGR TWICE DAY ORALLY
     Route: 048
     Dates: start: 20101201, end: 20101209

REACTIONS (2)
  - HAEMOGLOBIN DECREASED [None]
  - HEART INJURY [None]
